FAERS Safety Report 13759248 (Version 1)
Quarter: 2017Q3

REPORT INFORMATION
  Report Type: Spontaneous
  Country: US (occurrence: US)
  Receive Date: 20170717
  Receipt Date: 20170717
  Transmission Date: 20171127
  Serious: Yes (Other)
  Sender: FDA-Public Use
  Company Number: None

PATIENT
  Age: 72 Year
  Sex: Female
  Weight: 58.5 kg

DRUGS (15)
  1. ATENOLOL. [Concomitant]
     Active Substance: ATENOLOL
  2. VITAMIN D [Concomitant]
     Active Substance: CHOLECALCIFEROL
  3. LEVOTHYROXINE. [Concomitant]
     Active Substance: LEVOTHYROXINE
  4. LISINOPRIL. [Concomitant]
     Active Substance: LISINOPRIL
  5. OXYBUTYNIN [Concomitant]
     Active Substance: OXYBUTYNIN
  6. SULFASALAZINE. [Concomitant]
     Active Substance: SULFASALAZINE
  7. ASPIRIN. [Concomitant]
     Active Substance: ASPIRIN
  8. MULTI-VITAMIN [Concomitant]
     Active Substance: .ALPHA.-TOCOPHEROL ACETATE, DL-\ASCORBIC ACID\CYANOCOBALAMIN\FLUORIDE ION\FOLIC ACID\NIACIN\PYRIDOXINE\RIBOFLAVIN\THIAMINE\VITAMIN A\VITAMIN D
  9. NIFEDIPINE. [Concomitant]
     Active Substance: NIFEDIPINE
  10. VOLTAREN [Suspect]
     Active Substance: DICLOFENAC SODIUM
     Indication: MUSCULOSKELETAL PAIN
     Dosage: ?          QUANTITY:2 GRAMS;?
     Route: 061
     Dates: start: 20170623, end: 20170626
  11. CLONAZEPAM. [Concomitant]
     Active Substance: CLONAZEPAM
  12. DIPHENHYDRAMINE. [Concomitant]
     Active Substance: DIPHENHYDRAMINE
  13. ATORVASTATIN [Concomitant]
     Active Substance: ATORVASTATIN
  14. CALTRATE [Concomitant]
     Active Substance: CALCIUM CARBONATE
  15. VAGIFIEM [Concomitant]

REACTIONS (4)
  - Swelling face [None]
  - Pain [None]
  - Swelling [None]
  - Lip swelling [None]

NARRATIVE: CASE EVENT DATE: 20170624
